FAERS Safety Report 9117281 (Version 1)
Quarter: 2013Q1

REPORT INFORMATION
  Report Type: Report from Study
  Country: CA (occurrence: CA)
  Receive Date: 20130225
  Receipt Date: 20130225
  Transmission Date: 20140127
  Serious: Yes (Hospitalization)
  Sender: FDA-Public Use
  Company Number: CA-JNJFOC-20130209060

PATIENT
  Sex: Female

DRUGS (9)
  1. REMICADE [Suspect]
     Indication: CROHN^S DISEASE
     Route: 042
     Dates: start: 20121218
  2. REMICADE [Suspect]
     Indication: CROHN^S DISEASE
     Route: 042
     Dates: start: 20121031
  3. GABAPENTIN [Concomitant]
     Route: 065
  4. HYDROMORPHONE [Concomitant]
     Route: 065
  5. CYMBALTA [Concomitant]
     Route: 065
  6. ATIVAN [Concomitant]
     Route: 065
  7. VITAMIN B [Concomitant]
     Route: 065
  8. IMURAN [Concomitant]
     Route: 065
  9. PREDNISONE [Concomitant]
     Route: 065

REACTIONS (1)
  - Intestinal operation [Unknown]
